FAERS Safety Report 11042821 (Version 2)
Quarter: 2015Q2

REPORT INFORMATION
  Report Type: Spontaneous
  Country: US (occurrence: US)
  Receive Date: 20150417
  Receipt Date: 20150420
  Transmission Date: 20150821
  Serious: Yes (Other)
  Sender: FDA-Public Use
  Company Number: US-009507513-1504USA016707

PATIENT
  Age: 72 Year
  Sex: Female

DRUGS (1)
  1. NASONEX [Suspect]
     Active Substance: MOMETASONE FUROATE
     Indication: EAR CONGESTION
     Dosage: UNK
     Route: 045
     Dates: start: 20150410, end: 20150412

REACTIONS (4)
  - Product use issue [Unknown]
  - Feeling abnormal [Recovering/Resolving]
  - Hypoacusis [Recovering/Resolving]
  - Drug prescribing error [Unknown]

NARRATIVE: CASE EVENT DATE: 201504
